FAERS Safety Report 24100517 (Version 1)
Quarter: 2024Q3

REPORT INFORMATION
  Report Type: Spontaneous
  Country: US (occurrence: US)
  Receive Date: 20240717
  Receipt Date: 20240717
  Transmission Date: 20241016
  Serious: No
  Sender: PRINSTON PHARMACEUTICAL
  Company Number: US-PRINSTON PHARMACEUTICAL INC.-2023PRN00422

PATIENT
  Age: 68 Year
  Sex: Female

DRUGS (5)
  1. LOSARTAN POTASSIUM [Suspect]
     Active Substance: LOSARTAN POTASSIUM
     Indication: Blood pressure management
     Dosage: 50 MG, 1X/DAY (MORNING)
  2. LOSARTAN POTASSIUM [Suspect]
     Active Substance: LOSARTAN POTASSIUM
     Dosage: 25 MG, 1X/DAY (AFTERNOON)
  3. LOSARTAN POTASSIUM [Suspect]
     Active Substance: LOSARTAN POTASSIUM
     Dosage: 50 MG, 1X/DAY (MORNING)
     Dates: start: 20230808, end: 20230827
  4. LOSARTAN POTASSIUM [Suspect]
     Active Substance: LOSARTAN POTASSIUM
     Dosage: 25 MG, 1X/DAY (AFTERNOON)
     Dates: start: 20230808, end: 20230827
  5. LOSARTAN POTASSIUM [Suspect]
     Active Substance: LOSARTAN POTASSIUM
     Dosage: 0.5 TABLETS, 2X/DAY

REACTIONS (6)
  - Cerebrovascular disorder [Unknown]
  - Food allergy [Unknown]
  - Reaction to excipient [Unknown]
  - Tinnitus [Recovering/Resolving]
  - Dizziness [Unknown]
  - Presyncope [Unknown]
